FAERS Safety Report 17031211 (Version 4)
Quarter: 2020Q1

REPORT INFORMATION
  Report Type: Spontaneous
  Country: US (occurrence: US)
  Receive Date: 20191114
  Receipt Date: 20200302
  Transmission Date: 20200409
  Serious: Yes (Hospitalization, Other)
  Sender: FDA-Public Use
  Company Number: US-PFIZER INC-2019487455

PATIENT
  Age: 61 Year
  Sex: Female
  Weight: 91 kg

DRUGS (7)
  1. VITAMIN D3 [Concomitant]
     Active Substance: CHOLECALCIFEROL
     Dosage: 25 UG, UNK
  2. DELTASONE [Concomitant]
     Active Substance: PREDNISONE
     Dosage: UNK [TAKE 8 TABLETS (40 MG TOTAL) BY MOUTH DAILY FOR 3 DAYS, THEN 4 TABLETS (20 MG TOTAL) DAILY FOR]
     Route: 048
     Dates: start: 20191216, end: 20191228
  3. LETROZOLE. [Concomitant]
     Active Substance: LETROZOLE
     Dosage: UNK, CYCLIC
     Dates: start: 20190626
  4. IBRANCE [Suspect]
     Active Substance: PALBOCICLIB
     Dosage: 125 MG, CYCLIC (1 DAILY FOR 21 DAYS/ 21 DAYS IN A ROW THEN 7 DAYS OFF)
     Route: 048
     Dates: start: 20190626, end: 2019
  5. IBRANCE [Suspect]
     Active Substance: PALBOCICLIB
     Dosage: 125 MG, CYCLIC (TAKES DAILY FOR 21 DAYS ON THEN 7 OFF)
     Dates: start: 201907
  6. IBRANCE [Suspect]
     Active Substance: PALBOCICLIB
     Indication: BREAST CANCER FEMALE
     Dosage: 125 MG, CYCLIC (1 DAILY FOR 21 DAYS/ 21 DAYS IN A ROW THEN 7 DAYS OFF)
     Route: 048
     Dates: start: 20190626, end: 2019
  7. CALCIUM CARBONATE. [Concomitant]
     Active Substance: CALCIUM CARBONATE
     Dosage: UNK

REACTIONS (12)
  - Dyspnoea [Unknown]
  - Cough [Unknown]
  - Alopecia [Unknown]
  - White blood cell count decreased [Unknown]
  - Pyrexia [Unknown]
  - Upper respiratory tract infection [Unknown]
  - Fatigue [Unknown]
  - Oropharyngeal pain [Unknown]
  - Nasopharyngitis [Unknown]
  - Weight increased [Unknown]
  - Intentional product misuse [Unknown]
  - Pleural effusion [Unknown]

NARRATIVE: CASE EVENT DATE: 2019
